FAERS Safety Report 8334394-1 (Version None)
Quarter: 2012Q2

REPORT INFORMATION
  Report Type: 
  Country: None (occurrence: None)
  Receive Date: 20120503
  Receipt Date: 20120418
  Transmission Date: 20120825
  Serious: Yes (Life-Threatening)
  Sender: FDA-Public Use
  Company Number: CN-JNJFOC-20110400367

PATIENT
  Sex: Male

DRUGS (4)
  1. DEXAMETHASONE [Concomitant]
     Indication: PREMEDICATION
     Route: 065
     Dates: start: 20110303, end: 20110317
  2. REMICADE [Suspect]
     Indication: PSORIATIC ARTHROPATHY
     Dosage: ONCE IN 14 UNSPECIFIED
     Route: 042
     Dates: start: 20110317
  3. REMICADE [Suspect]
     Route: 042
     Dates: start: 20100312, end: 20100312
  4. REMICADE [Suspect]
     Route: 042
     Dates: start: 20110303

REACTIONS (8)
  - INFUSION RELATED REACTION [None]
  - EXOPHTHALMOS [None]
  - GENERALISED OEDEMA [None]
  - CONFUSIONAL STATE [None]
  - SHOCK [None]
  - ANAPHYLACTIC REACTION [None]
  - HEART RATE INCREASED [None]
  - LOSS OF CONSCIOUSNESS [None]
